FAERS Safety Report 9448202 (Version 1)
Quarter: 2013Q3

REPORT INFORMATION
  Report Type: Spontaneous
  Country: US (occurrence: None)
  Receive Date: 20130807
  Receipt Date: 20130807
  Transmission Date: 20140515
  Serious: Yes (Other)
  Sender: FDA-Public Use
  Company Number: None

PATIENT
  Age: 43 Year
  Sex: Female

DRUGS (1)
  1. FENTANYL [Suspect]
     Indication: PAIN MANAGEMENT
     Route: 062
     Dates: start: 20130622, end: 20130721

REACTIONS (3)
  - Product formulation issue [None]
  - Drug effect decreased [None]
  - Breakthrough pain [None]
